FAERS Safety Report 7108138-5 (Version None)
Quarter: 2010Q4

REPORT INFORMATION
  Report Type: 
  Country: None (occurrence: None)
  Receive Date: 20101117
  Receipt Date: 20101109
  Transmission Date: 20110411
  Serious: Yes (Other)
  Sender: FDA-Public Use
  Company Number: US-AMGEN-QUU405988

PATIENT

DRUGS (30)
  1. NPLATE [Suspect]
     Indication: IDIOPATHIC THROMBOCYTOPENIC PURPURA
     Dosage: UNK UNK, UNK
     Dates: start: 20090428
  2. NPLATE [Suspect]
     Dates: start: 20090428
  3. CORTICOSTEROID NOS [Concomitant]
     Dosage: UNK UNK, UNK
  4. IMMU-G [Concomitant]
     Dosage: UNK UNK, UNK
     Route: 042
     Dates: start: 20080801, end: 20090829
  5. COUMADIN [Concomitant]
  6. LIPITOR [Concomitant]
  7. HYZAAR                             /01284801/ [Concomitant]
  8. AVAPRO [Concomitant]
  9. WELLBUTRIN [Concomitant]
  10. ASPIRIN [Concomitant]
  11. CRESTOR [Concomitant]
  12. ZETIA [Concomitant]
  13. FOLIC ACID [Concomitant]
  14. TOPROL-XL [Concomitant]
  15. ACE                                /00008704/ [Concomitant]
  16. LEXAPRO [Concomitant]
  17. PREDNISONE [Concomitant]
  18. NEXIUM [Concomitant]
  19. METFORMIN HCL [Concomitant]
  20. AMARYL [Concomitant]
  21. NORVASC [Concomitant]
  22. PRILOSEC [Concomitant]
  23. GLUCOPHAGE [Concomitant]
  24. LISINOPRIL [Concomitant]
  25. LOPRESOR                           /00376902/ [Concomitant]
  26. CALCIUM W/VITAMIN D                /00188401/ [Concomitant]
  27. ACIDOPHILUS [Concomitant]
  28. RITALIN [Concomitant]
  29. DANAZOL [Concomitant]
  30. CEPHALEXIN [Concomitant]

REACTIONS (3)
  - ARTERIAL THROMBOSIS [None]
  - BLADDER CANCER [None]
  - CEREBROVASCULAR ACCIDENT [None]
